FAERS Safety Report 24739672 (Version 1)
Quarter: 2024Q4

REPORT INFORMATION
  Report Type: Spontaneous
  Country: US (occurrence: US)
  Receive Date: 20241216
  Receipt Date: 20241216
  Transmission Date: 20250115
  Serious: No
  Sender: SANOFI AVENTIS
  Company Number: US-SA-2024SA369862

PATIENT
  Age: 4 Year
  Sex: Male
  Weight: 18.82 kg

DRUGS (1)
  1. DUPIXENT [Suspect]
     Active Substance: DUPILUMAB
     Indication: Eczema
     Dosage: 300 MG, Q4W
     Route: 058

REACTIONS (6)
  - Pyrexia [Recovered/Resolved]
  - Pain in extremity [Recovered/Resolved]
  - Ear pain [Unknown]
  - Hyperhidrosis [Unknown]
  - Fatigue [Unknown]
  - Ear infection [Unknown]

NARRATIVE: CASE EVENT DATE: 20241118
